FAERS Safety Report 21191802 (Version 1)
Quarter: 2022Q3

REPORT INFORMATION
  Report Type: Spontaneous
  Country: US (occurrence: None)
  Receive Date: 20220809
  Receipt Date: 20220809
  Transmission Date: 20221026
  Serious: No
  Sender: FDA-Public Use
  Company Number: None

PATIENT
  Age: 89 Year
  Sex: Female
  Weight: 52.39 kg

DRUGS (15)
  1. CAPECITABINE [Suspect]
     Active Substance: CAPECITABINE
     Indication: Colon cancer
     Dosage: FREQUENCY : TWICE A DAY;?
     Route: 048
     Dates: start: 20220408
  2. CAPECITABINE [Suspect]
     Active Substance: CAPECITABINE
     Indication: Colon cancer
     Dates: start: 20220408
  3. ATORVASTATIN [Concomitant]
  4. COLACE [Concomitant]
  5. DORZOLAMIDE [Concomitant]
  6. ELIQUIS [Concomitant]
     Active Substance: APIXABAN
  7. LATANOPROST [Concomitant]
  8. MIRTAZAPINE [Concomitant]
  9. OXYCODONE [Concomitant]
  10. OYSTER SHELL [Concomitant]
  11. POTASSIUM CHLORIDE [Concomitant]
  12. PROCHLORPERAZINE [Concomitant]
  13. SENNOSIDES [Concomitant]
  14. SODIUM BICARBONATE [Concomitant]
  15. ZOFRAN [Concomitant]

REACTIONS (1)
  - Febrile neutropenia [None]
